FAERS Safety Report 14034993 (Version 1)
Quarter: 2017Q4

REPORT INFORMATION
  Report Type: Spontaneous
  Country: US (occurrence: US)
  Receive Date: 20171003
  Receipt Date: 20171003
  Transmission Date: 20180321
  Serious: No
  Sender: FDA-Public Use
  Company Number: US-PERRIGO-17US023621

PATIENT
  Sex: Female
  Weight: 136.5 kg

DRUGS (6)
  1. CHILDRENS CETIRIZINE HYDROCHLORIDE ALLERGY [Suspect]
     Active Substance: CETIRIZINE HYDROCHLORIDE
     Dosage: 5 MG, QD, PRN
     Route: 048
     Dates: start: 20170420, end: 20170510
  2. KETOTIFEN [Concomitant]
     Active Substance: KETOTIFEN
     Indication: MASTOCYTOSIS
     Dosage: UNK
     Route: 065
  3. ZANTAC [Concomitant]
     Active Substance: RANITIDINE HYDROCHLORIDE
     Indication: MASTOCYTOSIS
     Dosage: UNK
     Route: 065
  4. BENADRYL [Concomitant]
     Active Substance: DIPHENHYDRAMINE HYDROCHLORIDE
     Indication: MASTOCYTOSIS
     Dosage: UNK, PRN
     Route: 065
  5. CHILDRENS CETIRIZINE HYDROCHLORIDE ALLERGY [Suspect]
     Active Substance: CETIRIZINE HYDROCHLORIDE
     Indication: PROPHYLAXIS
     Dosage: 5 MG, QD, PRN
     Route: 048
     Dates: start: 2014, end: 20170419
  6. XYZAL [Concomitant]
     Active Substance: LEVOCETIRIZINE DIHYDROCHLORIDE
     Indication: MASTOCYTOSIS
     Dosage: UNK
     Route: 065
     Dates: start: 2016

REACTIONS (1)
  - Off label use [Recovered/Resolved]

NARRATIVE: CASE EVENT DATE: 2014
